FAERS Safety Report 6659082-9 (Version None)
Quarter: 2010Q1

REPORT INFORMATION
  Report Type: 
  Country: None (occurrence: None)
  Receive Date: 20100330
  Receipt Date: 20100323
  Transmission Date: 20100710
  Serious: Yes (Other)
  Sender: FDA-Public Use
  Company Number: US-CVT-100106

PATIENT

DRUGS (2)
  1. RANEXA [Suspect]
     Indication: DRUG USE FOR UNKNOWN INDICATION
     Dosage: 500 MG, UNK
     Dates: end: 20100301
  2. CRESTOR [Concomitant]

REACTIONS (1)
  - ERYTHEMA MULTIFORME [None]
